FAERS Safety Report 16204319 (Version 2)
Quarter: 2019Q3

REPORT INFORMATION
  Report Type: Spontaneous
  Country: DE (occurrence: DE)
  Receive Date: 20190416
  Receipt Date: 20190826
  Transmission Date: 20191004
  Serious: Yes (Other)
  Sender: FDA-Public Use
  Company Number: DE-UCBSA-2019015771

PATIENT
  Age: 0 Year
  Sex: Male
  Weight: 3.95 kg

DRUGS (2)
  1. LAMOTRIGIN [Suspect]
     Active Substance: LAMOTRIGINE
     Indication: EPILEPSY
     Dosage: 100 [MG/D ]
     Route: 064
     Dates: start: 20170704, end: 20180410
  2. LEVETIRACETAM. [Suspect]
     Active Substance: LEVETIRACETAM
     Indication: EPILEPSY
     Dosage: 2500 [MG/D ]/ 1000-0-1500 MG/D
     Route: 064
     Dates: start: 20170704, end: 20180410

REACTIONS (3)
  - Maternal exposure during pregnancy [Unknown]
  - Drug withdrawal syndrome neonatal [Recovered/Resolved]
  - Cryptorchism [Recovered/Resolved]

NARRATIVE: CASE EVENT DATE: 201707
